FAERS Safety Report 5385427-6 (Version None)
Quarter: 2007Q3

REPORT INFORMATION
  Report Type: 
  Country: None (occurrence: None)
  Receive Date: 20070709
  Receipt Date: 20070514
  Transmission Date: 20080115
  Serious: Yes (Hospitalization, Other)
  Sender: FDA-Public Use
  Company Number: 2006JP004334

PATIENT
  Age: 50 Year
  Sex: Female
  Weight: 54 kg

DRUGS (15)
  1. TACROLIMUS [Suspect]
     Indication: MYASTHENIA GRAVIS
     Dosage: 2 MG, UID/QD, ORAL
     Route: 048
     Dates: start: 20060618, end: 20060720
  2. TACROLIMUS [Suspect]
     Indication: MYASTHENIA GRAVIS
     Dosage: 2 MG, UID/QD, ORAL
     Route: 048
     Dates: start: 20060801, end: 20060901
  3. TACROLIMUS [Suspect]
     Indication: MYASTHENIA GRAVIS
     Dosage: 2 MG, UID/QD, ORAL
     Route: 048
     Dates: start: 20060901, end: 20061014
  4. TACROLIMUS [Suspect]
     Indication: MYASTHENIA GRAVIS
     Dosage: 2 MG, UID/QD, ORAL
     Route: 048
     Dates: start: 20061017, end: 20061026
  5. RHEUMATREX [Suspect]
     Indication: RHEUMATOID ARTHRITIS
     Dosage: SEE IMAGE
     Route: 048
     Dates: start: 20030312
  6. MEDROL [Concomitant]
  7. MESTINON [Concomitant]
  8. ASPARA-CA (ASPARTATE CALCIUM) TABLET [Concomitant]
  9. ALOSITOL TABLET [Concomitant]
  10. LEUCOVORIN (CALCIUM FOLINATE) TABLET [Concomitant]
  11. OMEPRAZON TABLET [Concomitant]
  12. AMOBAN (ZOPICLONE) TABLET [Concomitant]
  13. BONALON (ALENDRONIC ACID) TABLET [Concomitant]
  14. LOXONIN (LOXOPROFEN SODIUM) TABLET [Concomitant]
  15. VOLTAREN [Concomitant]

REACTIONS (9)
  - BLOOD CHOLESTEROL INCREASED [None]
  - BLOOD PRESSURE INCREASED [None]
  - BLOOD UREA DECREASED [None]
  - CEREBRAL INFARCTION [None]
  - FOLLICULITIS [None]
  - LACUNAR INFARCTION [None]
  - LOW DENSITY LIPOPROTEIN INCREASED [None]
  - NASOPHARYNGITIS [None]
  - TRANSIENT ISCHAEMIC ATTACK [None]
